FAERS Safety Report 5789567-9 (Version None)
Quarter: 2008Q2

REPORT INFORMATION
  Report Type: 
  Country: None (occurrence: None)
  Receive Date: 20080626
  Receipt Date: 20080211
  Transmission Date: 20081010
  Serious: No
  Sender: FDA-Public Use
  Company Number: A0708484A

PATIENT
  Sex: Female

DRUGS (5)
  1. ALLI [Suspect]
  2. ZOMIG [Concomitant]
  3. CYMBALTA [Concomitant]
  4. ZOLOFT [Concomitant]
  5. CLARITIN-D [Concomitant]

REACTIONS (1)
  - MIGRAINE [None]
